FAERS Safety Report 23444187 (Version 1)
Quarter: 2024Q1

REPORT INFORMATION
  Report Type: Spontaneous
  Country: US (occurrence: US)
  Receive Date: 20240125
  Receipt Date: 20240125
  Transmission Date: 20240410
  Serious: Yes (Other)
  Sender: FDA-Public Use
  Company Number: US-BAXTER-2024BAX011104

PATIENT
  Age: 63 Year
  Sex: Male

DRUGS (3)
  1. NEXTERONE [Suspect]
     Active Substance: AMIODARONE HYDROCHLORIDE
     Indication: Heart rate abnormal
     Dosage: LOADED WITH 150MG
     Route: 040
  2. NEXTERONE [Suspect]
     Active Substance: AMIODARONE HYDROCHLORIDE
     Dosage: FOLLOWED BY CONTINUOUS INFUSION (PATIENT RECEIVED 1020 MG OF AMIODARONE DURING THE INITIAL 22 HOURS
     Route: 041
  3. METOPROLOL [Concomitant]
     Active Substance: METOPROLOL
     Indication: Heart rate abnormal
     Dosage: RATE CONTROL WITH METOPROLOL WAS UNSUCCESSFUL
     Route: 042

REACTIONS (9)
  - Hepatic failure [Unknown]
  - Hypertransaminasaemia [Recovering/Resolving]
  - Multiple organ dysfunction syndrome [Unknown]
  - Hepatic encephalopathy [Unknown]
  - Coagulopathy [Unknown]
  - Hepatitis acute [Unknown]
  - Cardiogenic shock [Unknown]
  - Drug-induced liver injury [Unknown]
  - Acute kidney injury [Unknown]
